FAERS Safety Report 7374561-7 (Version None)
Quarter: 2011Q1

REPORT INFORMATION
  Report Type: 
  Country: None (occurrence: None)
  Receive Date: 20110325
  Receipt Date: 20100514
  Transmission Date: 20110831
  Serious: No
  Sender: FDA-Public Use
  Company Number: US-MYLANLABS-2010S1004631

PATIENT
  Age: 83 Year
  Sex: Female

DRUGS (6)
  1. PROPOXYPHENE NAPSYLATE AND ACETAMINOPHEN [Suspect]
     Route: 048
     Dates: end: 20100315
  2. PROPOXYPHENE NAPSYLATE AND ACETAMINOPHEN [Suspect]
     Route: 048
     Dates: end: 20100315
  3. FENTANYL-100 [Suspect]
     Indication: BACK PAIN
     Dosage: CHANGED Q3D
     Route: 062
     Dates: start: 20100301, end: 20100315
  4. PROPOXYPHENE NAPSYLATE AND ACETAMINOPHEN [Suspect]
     Indication: BACK PAIN
     Route: 048
     Dates: end: 20100315
  5. FENTANYL-100 [Suspect]
     Indication: ARTHRALGIA
     Dosage: CHANGED Q3D
     Route: 062
     Dates: start: 20100301, end: 20100315
  6. PROPOXYPHENE NAPSYLATE AND ACETAMINOPHEN [Suspect]
     Indication: ARTHRALGIA
     Route: 048
     Dates: end: 20100315

REACTIONS (7)
  - PALPITATIONS [None]
  - BURNING SENSATION [None]
  - TREMOR [None]
  - HEADACHE [None]
  - DYSPNOEA [None]
  - PRURITUS [None]
  - BONE PAIN [None]
